FAERS Safety Report 25192436 (Version 1)
Quarter: 2025Q2

REPORT INFORMATION
  Report Type: Other
  Country: US (occurrence: US)
  Receive Date: 20250414
  Receipt Date: 20250414
  Transmission Date: 20250716
  Serious: Yes (Hospitalization)
  Sender: LYNE LABORATORIES
  Company Number: US-Lyne Laboratories Inc.-2174801

PATIENT
  Age: 59 Year
  Sex: Female

DRUGS (10)
  1. DEXAMETHASONE [Suspect]
     Active Substance: DEXAMETHASONE
     Indication: COVID-19
  2. COBICISTAT [Interacting]
     Active Substance: COBICISTAT
  3. REMDESIVIR [Concomitant]
     Active Substance: REMDESIVIR
  4. METRONIDAZOLE [Concomitant]
     Active Substance: METRONIDAZOLE
  5. LEVOFLOXACIN [Concomitant]
     Active Substance: LEVOFLOXACIN
  6. SYMTUZA [Concomitant]
     Active Substance: COBICISTAT\DARUNAVIR\EMTRICITABINE\TENOFOVIR ALAFENAMIDE
  7. PREZISTA [Concomitant]
     Active Substance: DARUNAVIR ETHANOLATE
  8. TENOFOVIR [Concomitant]
     Active Substance: TENOFOVIR
  9. EMTRICITABINE [Concomitant]
     Active Substance: EMTRICITABINE
  10. ELVITEGRAVIR [Concomitant]
     Active Substance: ELVITEGRAVIR

REACTIONS (3)
  - Mania [Recovering/Resolving]
  - Product use in unapproved indication [Unknown]
  - Drug interaction [Recovering/Resolving]
